FAERS Safety Report 5267577-8 (Version None)
Quarter: 2007Q1

REPORT INFORMATION
  Report Type: 
  Country: None (occurrence: None)
  Receive Date: 20070316
  Receipt Date: 20070312
  Transmission Date: 20070707
  Serious: Yes (Hospitalization, Other)
  Sender: FDA-Public Use
  Company Number: US-BOEHRINGER INGELHEIM PHARMACEUTICALS, INC.-2007-BP-02728BP

PATIENT
  Age: 78 Year
  Sex: Male

DRUGS (1)
  1. SPIRIVA [Suspect]
     Indication: WHEEZING
     Route: 055
     Dates: start: 20050701

REACTIONS (3)
  - DRUG INEFFECTIVE [None]
  - INFECTION [None]
  - LUNG NEOPLASM MALIGNANT [None]
